FAERS Safety Report 4359223-2 (Version None)
Quarter: 2004Q2

REPORT INFORMATION
  Report Type: 
  Country: None (occurrence: None)
  Receive Date: 20040517
  Receipt Date: 20040517
  Transmission Date: 20050107
  Serious: No
  Sender: FDA-Public Use
  Company Number: None

PATIENT
  Age: 74 Year
  Sex: Male

DRUGS (18)
  1. HURRICANE SPRAY [Suspect]
     Indication: ECHOCARDIOGRAM
     Dosage: 4 SPRAYS
     Dates: start: 20040513
  2. AVANDIA [Concomitant]
  3. LOPRESSOR [Concomitant]
  4. NORVASC [Concomitant]
  5. AMARYL [Concomitant]
  6. COUMADIN [Concomitant]
  7. HYTRIN [Concomitant]
  8. PROTONIX [Concomitant]
  9. PHOSLO [Concomitant]
  10. HECTOROL [Concomitant]
  11. NEULRON [Concomitant]
  12. LASIX [Concomitant]
  13. POTASSIUM [Concomitant]
  14. CORDARONE [Concomitant]
  15. MIRLAX [Concomitant]
  16. EPOGEN [Concomitant]
  17. ZAROXOLYN [Concomitant]
  18. DUONEB [Concomitant]

REACTIONS (2)
  - DEPRESSED LEVEL OF CONSCIOUSNESS [None]
  - SKIN DISCOLOURATION [None]
